FAERS Safety Report 9233922 (Version 1)
Quarter: 2013Q2

REPORT INFORMATION
  Report Type: Spontaneous
  Country: US (occurrence: US)
  Receive Date: 20130416
  Receipt Date: 20130416
  Transmission Date: 20140414
  Serious: No
  Sender: FDA-Public Use
  Company Number: US-B.I. PHARMACEUTICALS,INC./RIDGEFIELD-2013-BI-08764BP

PATIENT
  Age: 59 Year
  Sex: Male

DRUGS (6)
  1. SPIRIVA [Suspect]
     Indication: CHRONIC OBSTRUCTIVE PULMONARY DISEASE
     Dosage: 18 MCG
     Route: 055
     Dates: start: 20130322
  2. LOSARTAN [Concomitant]
     Indication: HYPERTENSION
  3. DULERA [Concomitant]
     Indication: CHRONIC OBSTRUCTIVE PULMONARY DISEASE
  4. ALBUTEROL [Concomitant]
     Indication: INHALATION THERAPY
  5. MONTELUKAST [Concomitant]
     Indication: CHRONIC OBSTRUCTIVE PULMONARY DISEASE
  6. CETIRIZINE [Concomitant]
     Indication: HYPERSENSITIVITY

REACTIONS (2)
  - Dyspnoea [Unknown]
  - Rhinorrhoea [Not Recovered/Not Resolved]
